FAERS Safety Report 23386235 (Version 1)
Quarter: 2024Q1

REPORT INFORMATION
  Report Type: Spontaneous
  Country: US (occurrence: US)
  Receive Date: 20240110
  Receipt Date: 20240110
  Transmission Date: 20240410
  Serious: Yes (Other)
  Sender: FDA-Public Use
  Company Number: CID000000000043220

PATIENT

DRUGS (1)
  1. AMOXICILLIN [Suspect]
     Active Substance: AMOXICILLIN
     Indication: Product used for unknown indication
     Dosage: 400 MG/5 ML
     Route: 048

REACTIONS (2)
  - Anaphylactic shock [Unknown]
  - Lactose intolerance [Unknown]
